FAERS Safety Report 16987752 (Version 1)
Quarter: 2019Q4

REPORT INFORMATION
  Report Type: Report from Study
  Country: None (occurrence: BR)
  Receive Date: 20191104
  Receipt Date: 20191104
  Transmission Date: 20200122
  Serious: Yes (Other)
  Sender: FDA-Public Use
  Company Number: BR-ABBVIE-19K-020-2879146-00

PATIENT
  Age: 47 Year
  Sex: Female
  Weight: 78 kg

DRUGS (5)
  1. VELIJA [Suspect]
     Active Substance: DULOXETINE HYDROCHLORIDE
     Indication: NECK PAIN
     Dosage: IN THE MORNING
     Route: 065
  2. AZATHIOPRINE. [Concomitant]
     Active Substance: AZATHIOPRINE
     Indication: GASTROINTESTINAL DISORDER
     Route: 065
     Dates: start: 2014
  3. HUMIRA [Suspect]
     Active Substance: ADALIMUMAB
     Indication: COLITIS ULCERATIVE
     Route: 058
  4. DOLAMIN FLEX [Suspect]
     Active Substance: CLONIXIN\CYCLOBENZAPRINE
     Indication: NECK PAIN
     Route: 065
     Dates: start: 201909
  5. AMATO [Suspect]
     Active Substance: TOPIRAMATE
     Indication: NECK PAIN
     Route: 065
     Dates: start: 201909

REACTIONS (19)
  - Intervertebral disc protrusion [Recovering/Resolving]
  - Mobility decreased [Unknown]
  - Confusional state [Unknown]
  - Urinary tract infection [Recovering/Resolving]
  - Thrombosis [Unknown]
  - Memory impairment [Unknown]
  - Intervertebral disc degeneration [Unknown]
  - Arthralgia [Recovering/Resolving]
  - Neck pain [Recovering/Resolving]
  - Daydreaming [Not Recovered/Not Resolved]
  - Injection site erythema [Unknown]
  - Immunodeficiency [Unknown]
  - Injection site haemorrhage [Unknown]
  - Cardiovascular disorder [Unknown]
  - Chills [Not Recovered/Not Resolved]
  - Feeling cold [Unknown]
  - Peripheral swelling [Recovered/Resolved]
  - Injection site erythema [Recovered/Resolved]
  - Injection site swelling [Recovered/Resolved]

NARRATIVE: CASE EVENT DATE: 2016
